FAERS Safety Report 8357093-9 (Version None)
Quarter: 2012Q2

REPORT INFORMATION
  Report Type: 
  Country: None (occurrence: None)
  Receive Date: 20120514
  Receipt Date: 20120510
  Transmission Date: 20120825
  Serious: Yes (Other)
  Sender: FDA-Public Use
  Company Number: FR-ROCHE-1054201

PATIENT
  Age: 55 Year
  Sex: Female
  Weight: 60 kg

DRUGS (4)
  1. COPEGUS [Suspect]
     Route: 048
     Dates: start: 20120223
  2. PEGASYS [Suspect]
  3. COPEGUS [Suspect]
     Indication: HEPATITIS C
  4. PEGASYS [Suspect]
     Indication: HEPATITIS C
     Route: 058
     Dates: start: 20120223

REACTIONS (2)
  - FATIGUE [None]
  - RENAL FAILURE [None]
